FAERS Safety Report 19420199 (Version 2)
Quarter: 2021Q3

REPORT INFORMATION
  Report Type: Spontaneous
  Country: JP (occurrence: JP)
  Receive Date: 20210615
  Receipt Date: 20210706
  Transmission Date: 20211014
  Serious: Yes (Hospitalization, Other)
  Sender: FDA-Public Use
  Company Number: JP-BAYER-2021-154674

PATIENT
  Age: 18 Year
  Sex: Female
  Weight: 59 kg

DRUGS (1)
  1. YAZ [Suspect]
     Active Substance: DROSPIRENONE\ETHINYL ESTRADIOL
     Indication: HEAVY MENSTRUAL BLEEDING
     Dosage: UNK
     Route: 048
     Dates: start: 20210218, end: 20210225

REACTIONS (17)
  - Cognitive disorder [Recovered/Resolved with Sequelae]
  - Depressive symptom [Recovered/Resolved with Sequelae]
  - Anaemia [Recovering/Resolving]
  - Somnolence [Recovered/Resolved with Sequelae]
  - Moyamoya disease [None]
  - Hyporesponsive to stimuli [None]
  - Cerebral artery stenosis [Recovered/Resolved with Sequelae]
  - Basilar artery stenosis [None]
  - Headache [Recovered/Resolved with Sequelae]
  - Restlessness [Recovered/Resolved with Sequelae]
  - Serum ferritin decreased [Recovering/Resolving]
  - Memory impairment [None]
  - Carotid artery stenosis [Recovered/Resolved with Sequelae]
  - Depressed level of consciousness [Recovered/Resolved with Sequelae]
  - White matter lesion [Recovered/Resolved with Sequelae]
  - Language disorder [Recovered/Resolved with Sequelae]
  - Memory impairment [Recovered/Resolved with Sequelae]

NARRATIVE: CASE EVENT DATE: 20210521
